FAERS Safety Report 4554215-2 (Version None)
Quarter: 2004Q4

REPORT INFORMATION
  Report Type: 
  Country: None (occurrence: None)
  Receive Date: 20041227
  Receipt Date: 20041117
  Transmission Date: 20050328
  Serious: Yes (Hospitalization)
  Sender: FDA-Public Use
  Company Number: 04P-163-0280832-00

PATIENT
  Age: 59 Year
  Sex: Female
  Weight: 72.5755 kg

DRUGS (12)
  1. HUMIRA [Suspect]
     Indication: RHEUMATOID ARTHRITIS
     Dosage: 40 MG, 1 IN 2 WK, SUBCUTANEOUS
     Route: 058
     Dates: start: 20030501
  2. METHOTREXATE [Concomitant]
  3. DILTIAZEM HYDROCHLORIDE [Concomitant]
  4. LEXAPRO [Concomitant]
  5. ESTROGENS CONJUGATED [Concomitant]
  6. PROGESTERONE [Concomitant]
  7. PREDNISONE [Concomitant]
  8. LANSOPRAZOLE [Concomitant]
  9. TRAVATAN [Concomitant]
  10. FOLIC ACID [Concomitant]
  11. OCUVITE [Concomitant]
  12. TRAMADOL HCL [Concomitant]

REACTIONS (1)
  - PNEUMONIA [None]
